FAERS Safety Report 9126050 (Version 8)
Quarter: 2014Q2

REPORT INFORMATION
  Report Type: Spontaneous
  Country: US (occurrence: US)
  Receive Date: 20130117
  Receipt Date: 20140501
  Transmission Date: 20141212
  Serious: Yes (Hospitalization, Other)
  Sender: FDA-Public Use
  Company Number: US-009507513-1301USA007498

PATIENT
  Sex: Female

DRUGS (11)
  1. FOSAMAX [Suspect]
     Indication: OSTEOPENIA
     Dosage: 10 MG, UNK
     Route: 048
     Dates: start: 200007, end: 200010
  2. FOSAMAX [Suspect]
     Dosage: 70 MG, UNK
     Route: 048
     Dates: start: 200010, end: 200802
  3. ALENDRONATE SODIUM [Suspect]
     Indication: OSTEOPENIA
     Dosage: 70 MG, UNK
     Route: 048
     Dates: start: 200802, end: 201103
  4. ALENDRONATE SODIUM [Suspect]
     Dosage: 70MG, QW
     Route: 048
     Dates: start: 20020607
  5. VITAMINS (UNSPECIFIED) [Concomitant]
     Dosage: UNK UNK, QD
     Dates: start: 1990
  6. ASCORBIC ACID [Concomitant]
     Dosage: 500 MG, QD
     Dates: start: 1990
  7. VITAMIN E [Concomitant]
     Dosage: 400 IU, QD
     Dates: start: 1990
  8. CALCIUM (UNSPECIFIED) (+) VITAMIN D (UNSPECIFIED) [Concomitant]
     Dosage: 600 MG/400 IU, BID
     Dates: start: 1990
  9. ESOMEPRAZOLE [Concomitant]
     Dosage: UNK
     Dates: start: 200901, end: 201102
  10. HORMONES (UNSPECIFIED) [Concomitant]
     Dosage: UNK
     Dates: start: 1999, end: 2002
  11. MAXIDE [Suspect]
     Indication: HYPERTENSION
     Dosage: UNK
     Route: 048
     Dates: end: 20110721

REACTIONS (33)
  - Femur fracture [Recovered/Resolved]
  - Femur fracture [Recovering/Resolving]
  - Intramedullary rod insertion [Recovered/Resolved]
  - Intramedullary rod insertion [Unknown]
  - Medical device removal [Recovered/Resolved]
  - Hyponatraemia [Unknown]
  - Low turnover osteopathy [Unknown]
  - Impaired healing [Unknown]
  - Adverse event [Unknown]
  - Hypercholesterolaemia [Unknown]
  - Hysterectomy [Unknown]
  - Wrist fracture [Unknown]
  - Lumbar spinal stenosis [Unknown]
  - Osteoarthritis [Unknown]
  - Hyperlipidaemia [Unknown]
  - Osteoporosis [Unknown]
  - Arthritis [Unknown]
  - Varicose vein operation [Unknown]
  - Bladder repair [Unknown]
  - Cataract operation [Unknown]
  - Glaucoma [Unknown]
  - Diabetes mellitus [Unknown]
  - Transient ischaemic attack [Unknown]
  - Cerumen impaction [Recovered/Resolved]
  - Cerumen removal [Recovered/Resolved]
  - Spinal osteoarthritis [Unknown]
  - Osteoarthritis [Unknown]
  - Arthropathy [Unknown]
  - Exostosis [Unknown]
  - Osteoarthritis [Unknown]
  - Joint crepitation [Unknown]
  - Pain in extremity [Unknown]
  - Gastrooesophageal reflux disease [Unknown]
